FAERS Safety Report 9792306 (Version 2)
Quarter: 2014Q1

REPORT INFORMATION
  Report Type: Report from Study
  Country: JP (occurrence: JP)
  Receive Date: 20140102
  Receipt Date: 20140321
  Transmission Date: 20141002
  Serious: Yes (Other)
  Sender: FDA-Public Use
  Company Number: PHHY2013JP152634

PATIENT
  Age: 46 Year
  Sex: Female

DRUGS (22)
  1. LEPONEX / CLOZARIL [Suspect]
     Indication: SCHIZOPHRENIA, PARANOID TYPE
     Dosage: 12.5 MG, DAILY
     Route: 048
     Dates: start: 20130618, end: 20130618
  2. LEPONEX / CLOZARIL [Suspect]
     Dosage: 25 MG, DAILY
     Route: 048
     Dates: start: 20130619, end: 20130619
  3. LEPONEX / CLOZARIL [Suspect]
     Dosage: 50 MG, DAILY
     Route: 048
     Dates: start: 20130620, end: 20130624
  4. LEPONEX / CLOZARIL [Suspect]
     Dosage: 100 MG, DAILY
     Route: 048
     Dates: start: 20130625, end: 20130626
  5. LEPONEX / CLOZARIL [Suspect]
     Dosage: 125 MG, DAILY
     Route: 048
     Dates: start: 20130627, end: 20130627
  6. LEPONEX / CLOZARIL [Suspect]
     Dosage: 50 MG, DAILY
     Route: 048
     Dates: start: 20130628, end: 20130628
  7. LEPONEX / CLOZARIL [Suspect]
     Dosage: 50 MG, DAILY
     Route: 048
     Dates: start: 20130701, end: 20130701
  8. LEPONEX / CLOZARIL [Suspect]
     Dosage: 75 MG, DAILY
     Route: 048
     Dates: start: 20130702, end: 20130702
  9. LEPONEX / CLOZARIL [Suspect]
     Dosage: 100 MG, DAILY
     Route: 048
     Dates: start: 20130703, end: 20130703
  10. LEPONEX / CLOZARIL [Suspect]
     Dosage: 125 MG, DAILY
     Route: 048
     Dates: start: 20130704, end: 20130708
  11. LEPONEX / CLOZARIL [Suspect]
     Dosage: 150 MG, DAILY
     Route: 048
     Dates: start: 20130709, end: 20130710
  12. LEPONEX / CLOZARIL [Suspect]
     Dosage: 175 MG, DAILY
     Route: 048
     Dates: start: 20130711, end: 20130713
  13. LEPONEX / CLOZARIL [Suspect]
     Dosage: 200 MG, DAILY
     Route: 048
     Dates: start: 20130714, end: 20130717
  14. LEPONEX / CLOZARIL [Suspect]
     Dosage: 300 MG, DAILY
     Route: 048
     Dates: start: 20130718, end: 20130721
  15. LEPONEX / CLOZARIL [Suspect]
     Dosage: 400 MG, DAILY
     Route: 048
     Dates: start: 20130722, end: 20130729
  16. LEPONEX / CLOZARIL [Suspect]
     Dosage: 450 MG, DAILY
     Route: 048
     Dates: start: 20130730, end: 20130805
  17. LEPONEX / CLOZARIL [Suspect]
     Dosage: 475 MG, DAILY
     Route: 048
     Dates: start: 20130806, end: 20130812
  18. LEPONEX / CLOZARIL [Suspect]
     Dosage: 525 MG, DAILY
     Route: 048
     Dates: start: 20130813
  19. SEROQUEL [Concomitant]
     Indication: SCHIZOPHRENIA, PARANOID TYPE
     Dosage: 750 MG, UNK
     Route: 048
     Dates: start: 20130126
  20. SEROQUEL [Concomitant]
     Dosage: 500 MG, UNK
     Route: 048
     Dates: end: 20130627
  21. BROTIZOLAM [Concomitant]
     Dosage: 0.25 MG, UNK
     Route: 048
     Dates: start: 20130327, end: 20130618
  22. MAGNESIUM OXIDE [Concomitant]
     Dosage: 330 MG, UNK
     Route: 048
     Dates: start: 20130301, end: 20130625

REACTIONS (8)
  - Urinary tract infection [Recovering/Resolving]
  - C-reactive protein increased [Recovered/Resolved]
  - White blood cell count increased [Recovering/Resolving]
  - Pneumonia aspiration [Recovering/Resolving]
  - Blood creatine phosphokinase increased [Recovered/Resolved]
  - Myoclonus [Not Recovered/Not Resolved]
  - Asthenia [Not Recovered/Not Resolved]
  - Constipation [Not Recovered/Not Resolved]
